FAERS Safety Report 4941793-4 (Version None)
Quarter: 2006Q1

REPORT INFORMATION
  Report Type: 
  Country: None (occurrence: None)
  Receive Date: 20060307
  Receipt Date: 20060224
  Transmission Date: 20060701
  Serious: Yes (Other)
  Sender: FDA-Public Use
  Company Number: TPA2006A00109

PATIENT
  Age: 66 Year
  Sex: Male

DRUGS (3)
  1. ROZEREM [Suspect]
     Dosage: PER ORAL
     Route: 048
  2. LEXAPRO (ESCITALOPRAM OXALATE) (20 MILLIGRAM) [Concomitant]
  3. ATIVAN (LORAZEPAM) (2 MILLIGRAM) [Concomitant]

REACTIONS (3)
  - BRUXISM [None]
  - CONVULSION [None]
  - TONGUE BITING [None]
